FAERS Safety Report 17486372 (Version 4)
Quarter: 2022Q3

REPORT INFORMATION
  Report Type: Report from Study
  Country: US (occurrence: US)
  Receive Date: 20200303
  Receipt Date: 20220913
  Transmission Date: 20221026
  Serious: Yes (Other)
  Sender: FDA-Public Use
  Company Number: US-SHIRE-US202007878

PATIENT
  Age: 41 Year
  Sex: Female
  Weight: 88.4 kg

DRUGS (25)
  1. HUMAN IMMUNOGLOBULIN G\HYALURONIDASE RECOMBINANT HUMAN [Suspect]
     Active Substance: HUMAN IMMUNOGLOBULIN G\HYALURONIDASE RECOMBINANT HUMAN
     Indication: Primary immunodeficiency syndrome
     Dosage: 25 GRAM, Q2WEEKS
     Route: 058
     Dates: start: 20170804
  2. HUMAN IMMUNOGLOBULIN G\HYALURONIDASE RECOMBINANT HUMAN [Suspect]
     Active Substance: HUMAN IMMUNOGLOBULIN G\HYALURONIDASE RECOMBINANT HUMAN
     Indication: Immunodeficiency common variable
     Dosage: 25 GRAM, Q2WEEKS
     Route: 058
     Dates: start: 20170807
  3. HUMAN IMMUNOGLOBULIN G\HYALURONIDASE RECOMBINANT HUMAN [Suspect]
     Active Substance: HUMAN IMMUNOGLOBULIN G\HYALURONIDASE RECOMBINANT HUMAN
     Indication: Immunodeficiency
     Dosage: 12.5 GRAM, 1/WEEK
     Route: 058
     Dates: start: 20170807
  4. VYVANSE [Concomitant]
     Active Substance: LISDEXAMFETAMINE DIMESYLATE
  5. ACETAMINOPHEN [Concomitant]
     Active Substance: ACETAMINOPHEN
     Route: 065
  6. DIPHENHYDRAMINE HYDROCHLORIDE [Concomitant]
     Active Substance: DIPHENHYDRAMINE HYDROCHLORIDE
     Route: 065
  7. LIDOCAINE [Concomitant]
     Active Substance: LIDOCAINE
  8. EPINEPHRINE [Concomitant]
     Active Substance: EPINEPHRINE
  9. SODIUM CHLORIDE [Concomitant]
     Active Substance: SODIUM CHLORIDE
  10. CLONAZEPAM [Concomitant]
     Active Substance: CLONAZEPAM
  11. ADVIL [Concomitant]
     Active Substance: IBUPROFEN
  12. UNISOM SLEEPMELTS [Concomitant]
     Active Substance: DIPHENHYDRAMINE HYDROCHLORIDE
  13. RESTASIS [Concomitant]
     Active Substance: CYCLOSPORINE
  14. MECLIZINE HYDROCHLORIDE [Concomitant]
     Active Substance: MECLIZINE HYDROCHLORIDE
  15. Omega [Concomitant]
  16. PROBIOTICS NOS [Concomitant]
     Active Substance: PROBIOTICS NOS
  17. BENADRYL [Concomitant]
     Active Substance: DIPHENHYDRAMINE HYDROCHLORIDE
  18. FLUTICASONE PROPIONATE [Concomitant]
     Active Substance: FLUTICASONE PROPIONATE
  19. VITAMIN D3 [Concomitant]
     Active Substance: CHOLECALCIFEROL
  20. SINGULAIR [Concomitant]
     Active Substance: MONTELUKAST SODIUM
  21. RHOFADE [Concomitant]
     Active Substance: OXYMETAZOLINE HYDROCHLORIDE
  22. LEVOTHYROXINE SODIUM [Concomitant]
     Active Substance: LEVOTHYROXINE SODIUM
  23. ZYRTEC [Concomitant]
     Active Substance: CETIRIZINE HYDROCHLORIDE
  24. BUPROPION HYDROCHLORIDE XL [Concomitant]
     Active Substance: BUPROPION HYDROCHLORIDE
  25. FINACEA [Concomitant]
     Active Substance: AZELAIC ACID

REACTIONS (6)
  - Osteomyelitis [Unknown]
  - Sinusitis [Unknown]
  - Nasopharyngitis [Unknown]
  - Infection [Unknown]
  - Pharyngitis [Unknown]
  - Tooth infection [Unknown]

NARRATIVE: CASE EVENT DATE: 20220215
